FAERS Safety Report 9059711 (Version 1)
Quarter: 2013Q1

REPORT INFORMATION
  Report Type: Spontaneous
  Country: US (occurrence: None)
  Receive Date: 20130206
  Receipt Date: 20130206
  Transmission Date: 20140127
  Serious: Yes (Hospitalization)
  Sender: FDA-Public Use
  Company Number: None

PATIENT
  Sex: Male
  Weight: 99.3 kg

DRUGS (2)
  1. TEMOZOLOMIDE [Suspect]
     Dates: end: 20130116
  2. DECADRON [Concomitant]

REACTIONS (2)
  - Convulsion [None]
  - Blood glucose increased [None]
